FAERS Safety Report 5556113-4 (Version None)
Quarter: 2007Q4

REPORT INFORMATION
  Report Type: 
  Country: None (occurrence: None)
  Receive Date: 20071213
  Receipt Date: 20071203
  Transmission Date: 20080405
  Serious: Yes (Disabling, Other)
  Sender: FDA-Public Use
  Company Number: US-MERCK-0710USA02532

PATIENT
  Age: 78 Year
  Sex: Female
  Weight: 87 kg

DRUGS (2)
  1. FOSAMAX [Suspect]
     Indication: OSTEOPOROSIS
     Route: 048
     Dates: start: 20000101, end: 20070101
  2. CALCIUM (UNSPECIFIED) AND VITAMIN D (UNSPECIFIED) [Concomitant]
     Route: 048
     Dates: start: 20000101

REACTIONS (3)
  - GINGIVAL ATROPHY [None]
  - RESORPTION BONE INCREASED [None]
  - TOOTH LOSS [None]
